FAERS Safety Report 8875791 (Version 2)
Quarter: 2012Q4

REPORT INFORMATION
  Report Type: Report from Study
  Country: US (occurrence: US)
  Receive Date: 20121023
  Receipt Date: 20121114
  Transmission Date: 20130627
  Serious: Yes (Other)
  Sender: FDA-Public Use
  Company Number: US-ROCHE-1102663

PATIENT
  Age: 58 Year
  Sex: Female
  Weight: 77.63 kg

DRUGS (14)
  1. PEG-INTERFERON ALFA 2A [Suspect]
     Indication: CHRONIC HEPATITIS C
     Route: 058
     Dates: start: 20120720, end: 20121012
  2. TELAPREVIR [Suspect]
     Indication: CHRONIC HEPATITIS C
     Route: 048
     Dates: start: 20120720, end: 20121013
  3. RIBAVIRIN [Suspect]
     Indication: HEPATITIS C
     Route: 048
     Dates: start: 20120720
  4. RIBAVIRIN [Suspect]
     Route: 048
  5. BENADRYL [Concomitant]
     Indication: PRURITUS
  6. CORTISONE CREAM [Concomitant]
  7. AVEENO BATH [Concomitant]
  8. SARNA LOTION [Concomitant]
  9. AMBIEN [Concomitant]
     Route: 065
  10. CALCIUM [Concomitant]
     Route: 048
  11. PANTOPRAZOLE [Concomitant]
     Indication: GASTROOESOPHAGEAL REFLUX DISEASE
     Route: 048
  12. LORATADINE [Concomitant]
     Indication: HYPERSENSITIVITY
     Route: 048
  13. LORATADINE [Concomitant]
     Indication: PRURITUS
  14. EFFEXOR [Concomitant]
     Indication: DEPRESSION
     Dosage: dose increased
     Route: 048
     Dates: start: 201209

REACTIONS (18)
  - Depression [Unknown]
  - Agitation [Unknown]
  - Pruritus [Not Recovered/Not Resolved]
  - Anaemia [Recovering/Resolving]
  - Fatigue [Unknown]
  - Retching [Unknown]
  - Gastrooesophageal reflux disease [Unknown]
  - Depressed mood [Unknown]
  - Restless legs syndrome [Unknown]
  - Crying [Unknown]
  - Anal pruritus [Unknown]
  - Insomnia [Not Recovered/Not Resolved]
  - Tearfulness [Unknown]
  - Rash [Recovered/Resolved]
  - Sinusitis [Recovering/Resolving]
  - Visual impairment [Recovered/Resolved]
  - Visual impairment [Recovering/Resolving]
  - Visual impairment [Recovering/Resolving]
